FAERS Safety Report 7152691-2 (Version None)
Quarter: 2010Q4

REPORT INFORMATION
  Report Type: 
  Country: None (occurrence: None)
  Receive Date: 20101213
  Receipt Date: 20101206
  Transmission Date: 20110411
  Serious: Yes (Hospitalization)
  Sender: FDA-Public Use
  Company Number: CH-BRISTOL-MYERS SQUIBB COMPANY-15363849

PATIENT
  Age: 72 Year
  Sex: Male

DRUGS (1)
  1. DASATIMIB [Suspect]
     Indication: GASTROINTESTINAL STROMAL TUMOUR
     Dosage: INTERRUPTED ON 30OCT10,24NOV2010
     Route: 048
     Dates: start: 20100930

REACTIONS (6)
  - COAGULOPATHY [None]
  - HAEMORRHAGE [None]
  - HIGH TURNOVER OSTEOPATHY [None]
  - LOWER GASTROINTESTINAL HAEMORRHAGE [None]
  - PYREXIA [None]
  - URINARY BLADDER HAEMORRHAGE [None]
